FAERS Safety Report 12880691 (Version 1)
Quarter: 2016Q4

REPORT INFORMATION
  Report Type: Spontaneous
  Country: US (occurrence: US)
  Receive Date: 20161025
  Receipt Date: 20161025
  Transmission Date: 20170207
  Serious: No
  Sender: FDA-Public Use
  Company Number: US-GLAXOSMITHKLINE-A0854629A

PATIENT
  Age: 43 Year
  Sex: Female

DRUGS (9)
  1. LODINE [Concomitant]
     Active Substance: ETODOLAC
  2. CELEBREX [Concomitant]
     Active Substance: CELECOXIB
  3. IMITREX [Concomitant]
     Active Substance: SUMATRIPTAN SUCCINATE
  4. PAXIL [Suspect]
     Active Substance: PAROXETINE HYDROCHLORIDE
     Indication: MIGRAINE
     Route: 048
     Dates: start: 201001
  5. IMITREX [Suspect]
     Active Substance: SUMATRIPTAN SUCCINATE
     Indication: MIGRAINE
  6. KLONOPIN [Concomitant]
     Active Substance: CLONAZEPAM
  7. NAPROXIN [Concomitant]
     Active Substance: NAPROXEN
  8. NABUMETONE. [Concomitant]
     Active Substance: NABUMETONE
  9. ZOFRAN [Concomitant]
     Active Substance: ONDANSETRON HYDROCHLORIDE

REACTIONS (3)
  - Malaise [Unknown]
  - Drug effect incomplete [Unknown]
  - Nausea [Not Recovered/Not Resolved]

NARRATIVE: CASE EVENT DATE: 201001
